FAERS Safety Report 7254772-1 (Version None)
Quarter: 2011Q1

REPORT INFORMATION
  Report Type: 
  Country: None (occurrence: None)
  Receive Date: 20110129
  Receipt Date: 20100322
  Transmission Date: 20110831
  Serious: Yes (Other)
  Sender: FDA-Public Use
  Company Number: US-ABBOTT-10P-163-0634169-00

PATIENT
  Sex: Female
  Weight: 47.67 kg

DRUGS (2)
  1. IBUPROFEN [Suspect]
     Indication: RHEUMATOID ARTHRITIS
     Route: 048
  2. HUMIRA [Suspect]
     Indication: RHEUMATOID ARTHRITIS
     Route: 058
     Dates: start: 20100101, end: 20100308

REACTIONS (2)
  - WHITE BLOOD CELL COUNT INCREASED [None]
  - PYREXIA [None]
